FAERS Safety Report 16075294 (Version 2)
Quarter: 2019Q2

REPORT INFORMATION
  Report Type: Spontaneous
  Country: US (occurrence: US)
  Receive Date: 20190315
  Receipt Date: 20190424
  Transmission Date: 20190711
  Serious: No
  Sender: FDA-Public Use
  Company Number: US-TEVA-2019-US-1014561

PATIENT
  Sex: Male

DRUGS (1)
  1. DISULFIRAM TEVA [Suspect]
     Active Substance: DISULFIRAM
     Indication: ALCOHOLISM
     Dosage: I TABLET IN THE MORNING
     Dates: start: 2019

REACTIONS (2)
  - Treatment noncompliance [Unknown]
  - Drug ineffective [Unknown]
